FAERS Safety Report 18700344 (Version 1)
Quarter: 2021Q1

REPORT INFORMATION
  Report Type: Spontaneous
  Country: US (occurrence: US)
  Receive Date: 20210105
  Receipt Date: 20210105
  Transmission Date: 20210419
  Serious: No
  Sender: FDA-Public Use
  Company Number: US-SA-2020SA373340

PATIENT

DRUGS (1)
  1. DUPIXENT [Suspect]
     Active Substance: DUPILUMAB
     Indication: DERMATITIS ATOPIC

REACTIONS (12)
  - Alopecia [Unknown]
  - Pharyngeal erythema [Unknown]
  - Treatment failure [Unknown]
  - Lip blister [Unknown]
  - Pain [Unknown]
  - Skin exfoliation [Unknown]
  - Skin burning sensation [Unknown]
  - Lip erythema [Unknown]
  - Skin fissures [Unknown]
  - Rash papular [Unknown]
  - Dry skin [Unknown]
  - Oropharyngeal pain [Unknown]

NARRATIVE: CASE EVENT DATE: 20201007
